FAERS Safety Report 8943300 (Version 1)
Quarter: 2012Q4

REPORT INFORMATION
  Report Type: Spontaneous
  Country: GB (occurrence: None)
  Receive Date: 20121123
  Receipt Date: 20121123
  Transmission Date: 20130627
  Serious: Yes (Hospitalization, Other)
  Sender: FDA-Public Use
  Company Number: NSR_00715_2012

PATIENT
  Age: 45 Year
  Sex: Female

DRUGS (4)
  1. BACLOFEN [Suspect]
     Indication: MUSCLE SPASTICITY
     Dosage: , not prescribed dose )
     Route: 037
  2. BACLOFEN [Suspect]
     Indication: MUSCLE SPASTICITY
     Dosage: (DF[concentration 1000 ug/ml]
     Route: 037
  3. BACLOFEN [Suspect]
     Indication: MUSCLE SPASTICITY
     Dosage: , concentration 2000 ug/ml)
     Route: 037
  4. BACLOFEN [Suspect]
     Indication: MUSCLE SPASTICITY
     Dosage: concentration 1000 ug/ml)
     Route: 037

REACTIONS (13)
  - Device dislocation [None]
  - Muscle spasticity [None]
  - Pain [None]
  - Joint dislocation [None]
  - Device computer issue [None]
  - Overdose [None]
  - Somnolence [None]
  - Nausea [None]
  - Vomiting [None]
  - Respiratory depression [None]
  - Nystagmus [None]
  - Diplopia [None]
  - Apnoea [None]
